FAERS Safety Report 4557676-8 (Version None)
Quarter: 2005Q1

REPORT INFORMATION
  Report Type: 
  Country: None (occurrence: None)
  Receive Date: 20050103
  Receipt Date: 20040810
  Transmission Date: 20050727
  Serious: Yes (Other)
  Sender: FDA-Public Use
  Company Number: 2004UW17022

PATIENT
  Age: 61 Year
  Sex: Male
  Weight: 69.4003 kg

DRUGS (2)
  1. CRESTOR [Suspect]
     Indication: BLOOD CHOLESTEROL INCREASED
     Dates: start: 20040508
  2. FISH OIL [Concomitant]

REACTIONS (2)
  - CONSTIPATION [None]
  - HIGH DENSITY LIPOPROTEIN DECREASED [None]
